APPROVED DRUG PRODUCT: LINEZOLID
Active Ingredient: LINEZOLID
Strength: 200MG/100ML (2MG/ML)
Dosage Form/Route: SOLUTION;INTRAVENOUS
Application: A207354 | Product #001 | TE Code: AP
Applicant: NANG KUANG PHARMACEUTICAL CO LTD
Approved: Dec 20, 2016 | RLD: No | RS: No | Type: RX